FAERS Safety Report 25832102 (Version 1)
Quarter: 2025Q3

REPORT INFORMATION
  Report Type: Spontaneous
  Country: US (occurrence: US)
  Receive Date: 20250922
  Receipt Date: 20250922
  Transmission Date: 20251021
  Serious: No
  Sender: TRAVERE THERAPEUTICS
  Company Number: US-TRAVERE-2025TVT01408

PATIENT
  Sex: Male

DRUGS (1)
  1. FILSPARI [Suspect]
     Active Substance: SPARSENTAN
     Indication: IgA nephropathy
     Dosage: WITHOUT FILSPARI FOR APPROXIMATELY 5 DAYS
     Route: 048
     Dates: start: 20250109

REACTIONS (2)
  - Blood pressure increased [Unknown]
  - Product dose omission issue [Unknown]
